FAERS Safety Report 17955046 (Version 3)
Quarter: 2020Q3

REPORT INFORMATION
  Report Type: Spontaneous
  Country: US (occurrence: US)
  Receive Date: 20200629
  Receipt Date: 20200727
  Transmission Date: 20201103
  Serious: Yes (Death, Life-Threatening, Hospitalization, Other)
  Sender: FDA-Public Use
  Company Number: US-BAYER-2020-126034

PATIENT
  Age: 79 Year
  Sex: Female

DRUGS (18)
  1. REMODULIN [Suspect]
     Active Substance: TREPROSTINIL
     Indication: PULMONARY ARTERIAL HYPERTENSION
     Dosage: 0.040 ?G/KG, CONT
     Route: 058
     Dates: start: 20190517
  2. OMNICEF [Concomitant]
     Active Substance: CEFDINIR
     Dosage: UNK
  3. OMEPRAZOLE. [Concomitant]
     Active Substance: OMEPRAZOLE
     Dosage: UNK
  4. ROCEPHIN [Concomitant]
     Active Substance: CEFTRIAXONE SODIUM
     Dosage: UNK
     Route: 042
  5. BENZONATATE. [Concomitant]
     Active Substance: BENZONATATE
     Dosage: UNK
  6. SODIUM CHLORIDE. [Concomitant]
     Active Substance: SODIUM CHLORIDE
     Dosage: UNK
  7. ALBUTEROL HFA [Concomitant]
     Active Substance: ALBUTEROL SULFATE
     Dosage: UNK
     Route: 055
  8. CODEINE GUAIFENESIN [Concomitant]
     Active Substance: CODEINE PHOSPHATE\GUAIFENESIN
     Dosage: UNK
  9. LASIX [Concomitant]
     Active Substance: FUROSEMIDE
     Dosage: UNK
  10. ONDANSETRON [Concomitant]
     Active Substance: ONDANSETRON
     Dosage: UNK
  11. DIGOXIN. [Concomitant]
     Active Substance: DIGOXIN
     Dosage: UNK
  12. OXYGEN. [Concomitant]
     Active Substance: OXYGEN
     Dosage: 4?5 LITRE AND UPON ARRIVAL AT HOSPITAL AT 78%/6 L
  13. AZITHROMYCIN ANHYDROUS. [Concomitant]
     Active Substance: AZITHROMYCIN ANHYDROUS
     Dosage: UNK
  14. LEVOTHYROXINE. [Concomitant]
     Active Substance: LEVOTHYROXINE
     Dosage: UNK
  15. K?DUR [Concomitant]
     Active Substance: POTASSIUM CHLORIDE
     Dosage: UNK
  16. ADEMPAS [Suspect]
     Active Substance: RIOCIGUAT
     Indication: PRODUCT USED FOR UNKNOWN INDICATION
     Dosage: UNK
     Dates: end: 202001
  17. DUONEB [Concomitant]
     Active Substance: ALBUTEROL SULFATE\IPRATROPIUM BROMIDE
     Dosage: UNK
     Route: 055
  18. DECLOMYCIN [Concomitant]
     Active Substance: DEMECLOCYCLINE HYDROCHLORIDE
     Dosage: UNK

REACTIONS (20)
  - Acute respiratory failure [Not Recovered/Not Resolved]
  - Fatigue [Not Recovered/Not Resolved]
  - Cardiac failure acute [Not Recovered/Not Resolved]
  - Death [Fatal]
  - Asthenia [Not Recovered/Not Resolved]
  - Sarcoidosis [None]
  - Haemoglobin decreased [None]
  - Hypoxia [Not Recovered/Not Resolved]
  - Hospice care [None]
  - Dysphagia [None]
  - Aspiration [None]
  - Atrial fibrillation [Not Recovered/Not Resolved]
  - Pneumonia [Recovered/Resolved]
  - Lethargy [Not Recovered/Not Resolved]
  - Scleroderma [None]
  - Pulmonary arterial hypertension [Not Recovered/Not Resolved]
  - Dyspnoea [Not Recovered/Not Resolved]
  - Rales [Not Recovered/Not Resolved]
  - Pyrexia [Recovered/Resolved]
  - Feeding disorder [None]

NARRATIVE: CASE EVENT DATE: 20200407
